FAERS Safety Report 8902922 (Version 3)
Quarter: 2012Q4

REPORT INFORMATION
  Report Type: 
  Country: US (occurrence: US)
  Receive Date: 20121113
  Receipt Date: 20121204
  Transmission Date: 20130627
  Serious: No
  Sender: FDA-Public Use
  Company Number: US-ASTRAZENECA-2012SE82554

PATIENT
  Age: 52 Year
  Sex: Female

DRUGS (3)
  1. NEXIUM [Suspect]
     Route: 048
  2. PRILOSEC [Suspect]
     Route: 048
  3. OTC MEDICATIONS [Concomitant]

REACTIONS (6)
  - Feeling abnormal [Unknown]
  - Regurgitation [Unknown]
  - Aphagia [Unknown]
  - Drug dose omission [Unknown]
  - Drug ineffective [Unknown]
  - Gastric disorder [Unknown]
